FAERS Safety Report 4614418-5 (Version None)
Quarter: 2005Q1

REPORT INFORMATION
  Report Type: 
  Country: None (occurrence: None)
  Receive Date: 20050321
  Receipt Date: 20041209
  Transmission Date: 20050727
  Serious: Yes (Death, Hospitalization)
  Sender: FDA-Public Use
  Company Number: DE-MERCK-0412DEU00086

PATIENT
  Age: 74 Year
  Sex: Male
  Weight: 80 kg

DRUGS (7)
  1. VIOXX [Suspect]
     Indication: RHEUMATOID ARTHRITIS
     Route: 048
     Dates: start: 20010101, end: 20030203
  2. AZATHIOPRINE SODIUM [Concomitant]
     Route: 048
     Dates: start: 19850101
  3. CLOPREDNOL [Concomitant]
     Route: 048
     Dates: start: 20020101
  4. PANTOPRAZOLE SODIUM [Concomitant]
     Route: 048
     Dates: start: 20020101
  5. BISOPROLOL FUMARATE [Concomitant]
     Route: 048
     Dates: start: 20020101
  6. NAFRONYL OXALATE [Concomitant]
     Route: 048
     Dates: start: 20020101
  7. RAMIPRIL [Concomitant]
     Route: 048
     Dates: start: 20020101

REACTIONS (9)
  - ATHEROSCLEROSIS [None]
  - CORONARY ARTERY DISEASE [None]
  - ESCHERICHIA SEPSIS [None]
  - MYOCARDIAL INFARCTION [None]
  - OEDEMA PERIPHERAL [None]
  - PERIPHERAL OCCLUSIVE DISEASE [None]
  - SKIN ULCER [None]
  - SUDDEN DEATH [None]
  - TOE AMPUTATION [None]
